FAERS Safety Report 6838804-8 (Version None)
Quarter: 2010Q3

REPORT INFORMATION
  Report Type: 
  Country: None (occurrence: None)
  Receive Date: 20100713
  Receipt Date: 20070628
  Transmission Date: 20110219
  Serious: Yes (Other)
  Sender: FDA-Public Use
  Company Number: US-PFIZER INC-2007038365

PATIENT
  Sex: Female
  Weight: 63.5 kg

DRUGS (4)
  1. CHANTIX [Suspect]
     Indication: SMOKING CESSATION THERAPY
     Route: 048
     Dates: start: 20070322
  2. FOSAMAX [Concomitant]
     Indication: OSTEOPOROSIS
     Dosage: EVERY OTHER WEEK
  3. ACETYLSALICYLIC ACID [Concomitant]
  4. VITAMINS [Concomitant]

REACTIONS (3)
  - CRYING [None]
  - MOOD ALTERED [None]
  - SUICIDAL IDEATION [None]
